FAERS Safety Report 6469716-X (Version None)
Quarter: 2009Q4

REPORT INFORMATION
  Report Type: 
  Country: None (occurrence: None)
  Receive Date: 20091119
  Receipt Date: 20090728
  Transmission Date: 20100525
  Serious: Yes (Other)
  Sender: FDA-Public Use
  Company Number: WAES 0907USA05632

PATIENT
  Age: 74 Year
  Sex: Female
  Weight: 51.2565 kg

DRUGS (6)
  1. JANUVIA [Suspect]
     Indication: DIABETES MELLITUS
     Dosage: 50MG/DAILY/PO
     Route: 048
     Dates: start: 20081103, end: 20090513
  2. ACTOS [Concomitant]
  3. PREMARIN [Concomitant]
  4. GLYBURIDE [Concomitant]
  5. LISINOPRIL [Concomitant]
  6. LOVASTATIN [Concomitant]

REACTIONS (4)
  - INTESTINAL ISCHAEMIA [None]
  - PANCREATITIS [None]
  - RENAL CYST [None]
  - WEIGHT DECREASED [None]
